FAERS Safety Report 8583643 (Version 3)
Quarter: 2012Q4

REPORT INFORMATION
  Report Type: 
  Country: US (occurrence: US)
  Receive Date: 20120529
  Receipt Date: 20121102
  Transmission Date: 20130627
  Serious: Yes (Life-Threatening, Hospitalization, Other)
  Sender: FDA-Public Use
  Company Number: US-ASTRAZENECA-2010SE37436

PATIENT
  Age: 52 Year
  Sex: Female

DRUGS (21)
  1. SEROQUEL [Suspect]
     Indication: OBSESSIVE-COMPULSIVE DISORDER
     Route: 048
     Dates: end: 201007
  2. SEROQUEL [Suspect]
     Indication: DEPRESSION
     Route: 048
     Dates: end: 201007
  3. SEROQUEL [Suspect]
     Indication: BIPOLAR DISORDER
     Route: 048
     Dates: end: 201007
  4. SEROQUEL [Suspect]
     Indication: ANXIETY
     Route: 048
     Dates: end: 201007
  5. SEROQUEL [Suspect]
     Indication: OBSESSIVE-COMPULSIVE DISORDER
     Route: 048
     Dates: start: 20100809
  6. SEROQUEL [Suspect]
     Indication: DEPRESSION
     Route: 048
     Dates: start: 20100809
  7. SEROQUEL [Suspect]
     Indication: BIPOLAR DISORDER
     Route: 048
     Dates: start: 20100809
  8. SEROQUEL [Suspect]
     Indication: ANXIETY
     Route: 048
     Dates: start: 20100809
  9. SEROQUEL [Suspect]
     Indication: OBSESSIVE-COMPULSIVE DISORDER
     Route: 048
  10. SEROQUEL [Suspect]
     Indication: DEPRESSION
     Route: 048
  11. SEROQUEL [Suspect]
     Indication: BIPOLAR DISORDER
     Route: 048
  12. SEROQUEL [Suspect]
     Indication: ANXIETY
     Route: 048
  13. SEROQUEL [Suspect]
     Indication: OBSESSIVE-COMPULSIVE DISORDER
     Route: 048
  14. SEROQUEL [Suspect]
     Indication: DEPRESSION
     Route: 048
  15. SEROQUEL [Suspect]
     Indication: BIPOLAR DISORDER
     Route: 048
  16. SEROQUEL [Suspect]
     Indication: ANXIETY
     Route: 048
  17. SEROQUEL [Suspect]
     Indication: OBSESSIVE-COMPULSIVE DISORDER
     Route: 048
  18. SEROQUEL [Suspect]
     Indication: DEPRESSION
     Route: 048
  19. SEROQUEL [Suspect]
     Indication: BIPOLAR DISORDER
     Route: 048
  20. SEROQUEL [Suspect]
     Indication: ANXIETY
     Route: 048
  21. PAIN KILLERS [Suspect]
     Route: 065

REACTIONS (22)
  - Overdose [Unknown]
  - Depression [Unknown]
  - Suicide attempt [Unknown]
  - Foot fracture [Unknown]
  - Convulsion [Unknown]
  - Poor quality sleep [Unknown]
  - Crying [Unknown]
  - Abnormal behaviour [Unknown]
  - Middle insomnia [Unknown]
  - Tachyphrenia [Unknown]
  - Chest pain [Unknown]
  - Trichotillomania [Unknown]
  - Intentional self-injury [Unknown]
  - Depression [Recovering/Resolving]
  - Anxiety [Unknown]
  - Malaise [Unknown]
  - Burnout syndrome [Unknown]
  - Restlessness [Unknown]
  - Nightmare [Unknown]
  - Restless legs syndrome [Recovered/Resolved]
  - Intentional drug misuse [Unknown]
  - Drug dose omission [Unknown]
